FAERS Safety Report 25268121 (Version 1)
Quarter: 2025Q2

REPORT INFORMATION
  Report Type: Spontaneous
  Country: US (occurrence: US)
  Receive Date: 20250505
  Receipt Date: 20250505
  Transmission Date: 20250716
  Serious: No
  Sender: SCPHARMACEUTICALS
  Company Number: US-SCPHARMACEUTICALS-2025-SCPH-US000155

PATIENT

DRUGS (5)
  1. FUROSCIX [Suspect]
     Active Substance: FUROSEMIDE
     Indication: Hypervolaemia
     Route: 058
     Dates: start: 20250205, end: 20250205
  2. FUROSCIX [Suspect]
     Active Substance: FUROSEMIDE
     Route: 058
     Dates: start: 20250206, end: 20250206
  3. FUROSCIX [Suspect]
     Active Substance: FUROSEMIDE
     Route: 058
     Dates: start: 20250320, end: 20250320
  4. FUROSCIX [Suspect]
     Active Substance: FUROSEMIDE
     Route: 058
     Dates: start: 20250322, end: 20250322
  5. TORSEMIDE [Concomitant]
     Active Substance: TORSEMIDE
     Indication: Product used for unknown indication
     Dosage: 40 MG, BID

REACTIONS (1)
  - Drug effect less than expected [Unknown]

NARRATIVE: CASE EVENT DATE: 20250322
